FAERS Safety Report 6496917-7 (Version None)
Quarter: 2009Q4

REPORT INFORMATION
  Report Type: 
  Country: None (occurrence: None)
  Receive Date: 20091215
  Receipt Date: 20091210
  Transmission Date: 20100525
  Serious: Yes (Other)
  Sender: FDA-Public Use
  Company Number: US-TEVA-217740USA

PATIENT
  Sex: Female

DRUGS (8)
  1. METHOTREXATE SOLUTION FOR INJECTION, 25 MG/ML [Suspect]
     Indication: RHEUMATOID ARTHRITIS
     Dates: start: 20041201
  2. METHOTREXATE SOLUTION FOR INJECTION, 25 MG/ML [Concomitant]
  3. ABATACEPT [Suspect]
     Indication: RHEUMATOID ARTHRITIS
     Dates: start: 20080918
  4. PREDNISONE [Concomitant]
     Dates: start: 20080801
  5. NAPROXEN SODIUM [Concomitant]
  6. LEVOTHYROXINE SODIUM [Concomitant]
     Dates: start: 19510101
  7. FOLIC ACID [Concomitant]
     Dates: start: 20041201
  8. CALCIUM [Concomitant]
     Dates: start: 19920101

REACTIONS (1)
  - LUNG ADENOCARCINOMA [None]
